FAERS Safety Report 17718564 (Version 1)
Quarter: 2020Q2

REPORT INFORMATION
  Report Type: Report from Study
  Country: None (occurrence: GB)
  Receive Date: 20200428
  Receipt Date: 20200428
  Transmission Date: 20200714
  Serious: Yes (Hospitalization)
  Sender: FDA-Public Use
  Company Number: GB-ABBVIE-19K-167-2958586-00

PATIENT
  Sex: Male

DRUGS (2)
  1. DUODOPA [Suspect]
     Active Substance: CARBIDOPA\LEVODOPA
     Dosage: TWO 100ML CASSETTE DAILY
     Route: 050
  2. DUODOPA [Suspect]
     Active Substance: CARBIDOPA\LEVODOPA
     Indication: PARKINSON^S DISEASE
     Dosage: 100ML CASSETTE TWICE PER DAY?5MG/1ML?20MG/1ML
     Route: 050

REACTIONS (6)
  - Delusion [Unknown]
  - Intentional product misuse [Not Recovered/Not Resolved]
  - Somnolence [Not Recovered/Not Resolved]
  - Psychotic disorder [Unknown]
  - Malaise [Not Recovered/Not Resolved]
  - Dementia [Not Recovered/Not Resolved]

NARRATIVE: CASE EVENT DATE: 2020
